FAERS Safety Report 26056266 (Version 1)
Quarter: 2025Q4

REPORT INFORMATION
  Report Type: Spontaneous
  Country: US (occurrence: US)
  Receive Date: 20251118
  Receipt Date: 20251118
  Transmission Date: 20260117
  Serious: No
  Sender: SANDOZ
  Company Number: US-SANDOZ-SDZ2025US084422

PATIENT
  Sex: Female

DRUGS (1)
  1. CIPROFLOXACIN AND DEXAMETHASONE [Suspect]
     Active Substance: CIPROFLOXACIN HYDROCHLORIDE\DEXAMETHASONE
     Indication: Product used for unknown indication
     Dosage: CIPROFLOXACIN 0.3% AND DEXAMETHASONE 0.1% STERILE OTIC SUSPENSION
     Route: 065

REACTIONS (2)
  - Ocular hyperaemia [Unknown]
  - Incorrect route of product administration [Unknown]
